FAERS Safety Report 6376051-7 (Version None)
Quarter: 2009Q3

REPORT INFORMATION
  Report Type: 
  Country: None (occurrence: None)
  Receive Date: 20090924
  Receipt Date: 20090914
  Transmission Date: 20100115
  Serious: Yes (Hospitalization, Other)
  Sender: FDA-Public Use
  Company Number: HU-GENENTECH-290287

PATIENT
  Sex: Female
  Weight: 85 kg

DRUGS (9)
  1. LUCENTIS [Suspect]
     Indication: MACULAR DEGENERATION
     Dosage: 0.5 G, UNK
     Route: 031
     Dates: start: 20090424
  2. LUCENTIS [Suspect]
     Dosage: 0.5 MG, UNK
     Route: 031
     Dates: start: 20090528
  3. LUCENTIS [Suspect]
     Dosage: 0.5 MG, UNK
     Route: 031
     Dates: start: 20090630
  4. LUCENTIS [Suspect]
     Dosage: 0.5 MG, UNK
     Route: 031
     Dates: start: 20090814
  5. CORINFAR [Concomitant]
     Indication: DRUG USE FOR UNKNOWN INDICATION
  6. SIMVASTATIN [Concomitant]
     Indication: DRUG USE FOR UNKNOWN INDICATION
  7. ENALAPRIL MALEATE [Concomitant]
     Indication: DRUG USE FOR UNKNOWN INDICATION
  8. LEVOTHYROXINE SODIUM [Concomitant]
     Indication: DRUG USE FOR UNKNOWN INDICATION
  9. COLFARIT [Concomitant]
     Indication: DRUG USE FOR UNKNOWN INDICATION

REACTIONS (2)
  - ENDOPHTHALMITIS [None]
  - PHOTOPHOBIA [None]
